FAERS Safety Report 4662180-2 (Version None)
Quarter: 2005Q2

REPORT INFORMATION
  Report Type: 
  Country: None (occurrence: None)
  Receive Date: 20050512
  Receipt Date: 20050421
  Transmission Date: 20051028
  Serious: Yes (Hospitalization, Other)
  Sender: FDA-Public Use
  Company Number: US_0504116337

PATIENT
  Age: 83 Year
  Sex: Female
  Weight: 47 kg

DRUGS (6)
  1. FORTEO [Suspect]
     Indication: OSTEOPOROSIS
     Dosage: 20 UG EVERY OTHER DAY
     Dates: start: 20041101
  2. LANSOPRAZOLE [Concomitant]
  3. AMLODIPINE BESYLATE [Concomitant]
  4. CALCIUM AND VITAMIN D [Concomitant]
  5. TUMS (CALCIUM CARBONATE0 [Concomitant]
  6. VIT C TAB [Concomitant]

REACTIONS (15)
  - ARTHROPATHY [None]
  - COLITIS ULCERATIVE [None]
  - DRUG DOSE OMISSION [None]
  - DYSPEPSIA [None]
  - FEELING ABNORMAL [None]
  - GASTRIC DISORDER [None]
  - GASTROINTESTINAL PAIN [None]
  - INSOMNIA [None]
  - MALAISE [None]
  - MUSCLE SPASMS [None]
  - NAUSEA [None]
  - PHARMACEUTICAL PRODUCT COMPLAINT [None]
  - RECTAL HAEMORRHAGE [None]
  - THYROID DISORDER [None]
  - ULCER HAEMORRHAGE [None]
